FAERS Safety Report 12824390 (Version 2)
Quarter: 2016Q4

REPORT INFORMATION
  Report Type: Spontaneous
  Country: JP (occurrence: JP)
  Receive Date: 20161007
  Receipt Date: 20161114
  Transmission Date: 20170207
  Serious: Yes (Hospitalization)
  Sender: FDA-Public Use
  Company Number: JP-SA-2016SA184221

PATIENT
  Age: 74 Year
  Sex: Male

DRUGS (12)
  1. FLUOROURACIL. [Suspect]
     Active Substance: FLUOROURACIL
     Indication: METASTASES TO LIVER
     Dosage: BOLUS ON DAY 1
     Route: 065
     Dates: start: 201304
  2. ELPLAT [Suspect]
     Active Substance: OXALIPLATIN
     Indication: ADENOCARCINOMA GASTRIC
     Dosage: ON DAY 1
     Route: 041
     Dates: end: 201403
  3. LEUCOVORIN. [Suspect]
     Active Substance: LEUCOVORIN
     Indication: ADENOCARCINOMA GASTRIC
     Dosage: AS A 2 HOUR INFUSION ON DAY 1, AT 2 WEEK INTERVALS
     Route: 065
  4. TS-1 [Concomitant]
     Active Substance: GIMERACIL\OTERACIL\TEGAFUR
     Indication: METASTASES TO LIVER
     Route: 048
     Dates: start: 2013, end: 2014
  5. ELPLAT [Suspect]
     Active Substance: OXALIPLATIN
     Indication: ADENOCARCINOMA GASTRIC
     Dosage: ON DAY 1
     Route: 041
     Dates: start: 201304, end: 201306
  6. LEUCOVORIN. [Suspect]
     Active Substance: LEUCOVORIN
     Indication: METASTASES TO LIVER
     Dosage: AS A 2 HOUR INFUSION ON DAY 1, AT 2 WEEK INTERVALS
     Route: 065
  7. FLUOROURACIL. [Suspect]
     Active Substance: FLUOROURACIL
     Indication: METASTASES TO LIVER
     Dosage: 46-HOUR INFUSION AT 2 WEEK INTERVALS
     Route: 065
     Dates: end: 201306
  8. ELPLAT [Suspect]
     Active Substance: OXALIPLATIN
     Indication: METASTASES TO LIVER
     Dosage: ON DAY 1
     Route: 041
     Dates: start: 201304, end: 201306
  9. ELPLAT [Suspect]
     Active Substance: OXALIPLATIN
     Indication: METASTASES TO LIVER
     Dosage: ON DAY 1
     Route: 041
     Dates: end: 201403
  10. FLUOROURACIL. [Suspect]
     Active Substance: FLUOROURACIL
     Indication: ADENOCARCINOMA GASTRIC
     Dosage: 46-HOUR INFUSION AT 2 WEEK INTERVALS
     Route: 065
     Dates: end: 201306
  11. LEVOFOLINATE [Suspect]
     Active Substance: LEVOLEUCOVORIN CALCIUM
     Indication: GASTRIC CANCER
     Route: 041
     Dates: start: 201304, end: 201306
  12. FLUOROURACIL. [Suspect]
     Active Substance: FLUOROURACIL
     Indication: ADENOCARCINOMA GASTRIC
     Dosage: BOLUS ON DAY 1
     Route: 065
     Dates: start: 201304

REACTIONS (10)
  - Oedema peripheral [Recovering/Resolving]
  - Pseudocirrhosis [Recovering/Resolving]
  - Hepatic neoplasm [Recovering/Resolving]
  - Hepatic atrophy [Recovering/Resolving]
  - Neuropathy peripheral [Recovered/Resolved]
  - Ascites [Recovered/Resolved]
  - Pleural effusion [Recovering/Resolving]
  - Hypoalbuminaemia [Recovered/Resolved]
  - Abdominal distension [Recovering/Resolving]
  - Product use issue [Unknown]
